FAERS Safety Report 16258644 (Version 6)
Quarter: 2022Q2

REPORT INFORMATION
  Report Type: Spontaneous
  Country: SK (occurrence: SK)
  Receive Date: 20190430
  Receipt Date: 20220412
  Transmission Date: 20220720
  Serious: Yes (Hospitalization, Other)
  Sender: FDA-Public Use
  Company Number: PHHY2019SK093807

PATIENT
  Age: 55 Year
  Sex: Female
  Weight: 70 kg

DRUGS (7)
  1. CYCLOSPORINE [Suspect]
     Active Substance: CYCLOSPORINE
     Indication: Prophylaxis
     Dosage: UNK
     Route: 065
     Dates: start: 2018
  2. FLUCONAZOLE [Suspect]
     Active Substance: FLUCONAZOLE
     Indication: Prophylaxis
     Dosage: UNK
     Route: 065
     Dates: start: 2018
  3. VANCOMYCIN HYDROCHLORIDE [Suspect]
     Active Substance: VANCOMYCIN HYDROCHLORIDE
     Indication: Prophylaxis
     Dosage: UNK (COMBINATION WITH METRONIDAZOLE)
     Route: 065
     Dates: start: 2018
  4. MYCOPHENOLATE MOFETIL [Suspect]
     Active Substance: MYCOPHENOLATE MOFETIL
     Indication: Product used for unknown indication
     Dosage: UNK
     Route: 065
  5. MEROPENEM [Suspect]
     Active Substance: MEROPENEM
     Indication: Antibiotic therapy
     Dosage: UNK (IN COMBINATION WITH METRONIDAZOLE)
     Route: 065
  6. MEROPENEM [Suspect]
     Active Substance: MEROPENEM
     Dosage: UNK (MONOTHERAPY)
     Route: 065
     Dates: start: 2018, end: 2018
  7. METRONIDAZOLE [Suspect]
     Active Substance: METRONIDAZOLE
     Indication: Prophylaxis
     Dosage: UNK (IN COMBINATION WITH MEROPENEM)
     Route: 042
     Dates: start: 2018, end: 2018

REACTIONS (8)
  - Neutropenic colitis [Recovered/Resolved]
  - Abdominal pain [Unknown]
  - Pancytopenia [Recovered/Resolved]
  - Pyrexia [Recovered/Resolved]
  - Neutropenia [Recovered/Resolved]
  - Liver abscess [Unknown]
  - Clostridium difficile colitis [Unknown]
  - Dyspepsia [Unknown]

NARRATIVE: CASE EVENT DATE: 20180101
